FAERS Safety Report 6234026-2 (Version None)
Quarter: 2009Q2

REPORT INFORMATION
  Report Type: 
  Country: None (occurrence: None)
  Receive Date: 20090618
  Receipt Date: 20090609
  Transmission Date: 20091009
  Serious: Yes (Hospitalization)
  Sender: FDA-Public Use
  Company Number: US-BIOGENIDEC-2009BI017811

PATIENT
  Age: 57 Year
  Sex: Female

DRUGS (2)
  1. AVONEX [Suspect]
     Indication: MULTIPLE SCLEROSIS
     Route: 030
     Dates: start: 19970101, end: 20010101
  2. AVONEX [Suspect]
     Route: 030
     Dates: start: 20071009

REACTIONS (5)
  - FALL [None]
  - LUNG INJURY [None]
  - NARCOLEPSY [None]
  - PNEUMONIA [None]
  - SKIN ULCER [None]
